FAERS Safety Report 23293334 (Version 1)
Quarter: 2023Q4

REPORT INFORMATION
  Report Type: Spontaneous
  Country: US (occurrence: US)
  Receive Date: 20231213
  Receipt Date: 20231213
  Transmission Date: 20240109
  Serious: No
  Sender: FDA-Public Use
  Company Number: US-GLAXOSMITHKLINE-US2023AMR174141

PATIENT
  Sex: Female
  Weight: 59.864 kg

DRUGS (1)
  1. ZEJULA [Suspect]
     Active Substance: NIRAPARIB
     Indication: Ovarian cancer
     Dosage: 100 MG, QD
     Route: 048
     Dates: start: 20230503

REACTIONS (5)
  - Dry eye [Unknown]
  - Skin exfoliation [Unknown]
  - Foot deformity [Unknown]
  - Muscle spasms [Unknown]
  - Dry skin [Unknown]
